FAERS Safety Report 4389288-3 (Version None)
Quarter: 2004Q2

REPORT INFORMATION
  Report Type: 
  Country: None (occurrence: None)
  Receive Date: 20040624
  Receipt Date: 20040614
  Transmission Date: 20050107
  Serious: Yes (Hospitalization)
  Sender: FDA-Public Use
  Company Number: PHEH2004US01666

PATIENT
  Age: 85 Year
  Sex: Male

DRUGS (6)
  1. VISUDYNE [Suspect]
     Indication: MACULAR DEGENERATION
     Dosage: 2 MG/ML ONCE IV
     Route: 042
     Dates: start: 20040206, end: 20040206
  2. ADALAT [Suspect]
  3. PREVACID [Suspect]
  4. EYE DROPS [Concomitant]
  5. PROSCAR [Concomitant]
  6. CAPTOPRIL [Concomitant]

REACTIONS (6)
  - BACK PAIN [None]
  - BRAIN SCAN ABNORMAL [None]
  - INFUSION RELATED REACTION [None]
  - NUCLEAR MAGNETIC RESONANCE IMAGING BRAIN ABNORMAL [None]
  - PAIN [None]
  - TRANSIENT ISCHAEMIC ATTACK [None]
